FAERS Safety Report 14278948 (Version 2)
Quarter: 2017Q4

REPORT INFORMATION
  Report Type: Spontaneous
  Country: TR (occurrence: TR)
  Receive Date: 20171213
  Receipt Date: 20171229
  Transmission Date: 20180321
  Serious: Yes (Life-Threatening, Hospitalization, Congenital Anomaly, Other)
  Sender: FDA-Public Use
  Company Number: TR-SUN PHARMACEUTICAL INDUSTRIES LTD-2017RR-156802

PATIENT

DRUGS (3)
  1. BECLOMETASONE DIPROPIONATE, FORMOTEROL FUMARATE DIHYDRATE [Suspect]
     Active Substance: BECLOMETHASONE DIPROPIONATE\FORMOTEROL FUMARATE
     Indication: ASTHMA
     Dosage: UNK
     Route: 064
  2. DESMONT [Suspect]
     Active Substance: DESLORATADINE\MONTELUKAST SODIUM
     Indication: ASTHMA
     Dosage: 10 MG
     Route: 064
  3. DESLORATADINE. [Suspect]
     Active Substance: DESLORATADINE
     Indication: ASTHMA
     Dosage: 5 MG
     Route: 064

REACTIONS (8)
  - Foetal exposure during pregnancy [Unknown]
  - Adrenogenital syndrome [Unknown]
  - Aplasia cutis congenita [Unknown]
  - Dysmorphism [Unknown]
  - Barth syndrome [Unknown]
  - Ear malformation [Unknown]
  - Disorder of sex development [Unknown]
  - Duodenal atresia [Unknown]
